FAERS Safety Report 16833004 (Version 1)
Quarter: 2019Q3

REPORT INFORMATION
  Report Type: Spontaneous
  Country: US (occurrence: US)
  Receive Date: 20190731
  Receipt Date: 20190731
  Transmission Date: 20191005
  Serious: Yes (Life-Threatening)
  Sender: FDA-Public Use
  Company Number: None

PATIENT
  Sex: Female

DRUGS (1)
  1. AVONEX [Suspect]
     Active Substance: INTERFERON BETA-1A
     Indication: MULTIPLE SCLEROSIS
     Route: 030
     Dates: start: 20190513, end: 20190701

REACTIONS (8)
  - Headache [None]
  - Muscle spasms [None]
  - Dyskinesia [None]
  - Vomiting [None]
  - Influenza like illness [None]
  - Multiple sclerosis [None]
  - Dizziness [None]
  - Therapy cessation [None]
